FAERS Safety Report 7188815-0 (Version None)
Quarter: 2010Q4

REPORT INFORMATION
  Report Type: 
  Country: None (occurrence: None)
  Receive Date: 20101222
  Receipt Date: 20100727
  Transmission Date: 20110411
  Serious: No
  Sender: FDA-Public Use
  Company Number: US-AMGEN-KDL427177

PATIENT

DRUGS (3)
  1. ENBREL [Suspect]
     Indication: RHEUMATOID ARTHRITIS
     Dosage: 50 MG, QWK
     Route: 058
     Dates: start: 20091013
  2. BUSPIRONE [Concomitant]
     Dosage: UNK UNK, UNK
  3. LISINOPRIL [Concomitant]
     Dosage: UNK UNK, UNK

REACTIONS (1)
  - TOOTH INFECTION [None]
